FAERS Safety Report 9557777 (Version 1)
Quarter: 2013Q3

REPORT INFORMATION
  Report Type: Spontaneous
  Country: US (occurrence: None)
  Receive Date: 20130726
  Receipt Date: 20130726
  Transmission Date: 20140515
  Serious: Yes (Hospitalization)
  Sender: FDA-Public Use
  Company Number: UTC-027853

PATIENT
  Age: 45 Year
  Sex: Female

DRUGS (2)
  1. REMODULIN (5 MILLIGRAM/MILLILITERS, INJECTION FOR INFUSION) (TREPROSTINIL SODIUM) [Suspect]
     Dosage: 100.8 UG/KG (0.07 UG/KG, 1 IN 1 D
     Dates: start: 20080718
  2. LETAIRIS (AMBRISENTAN) (TABLET) (AMBRISENTAN) [Suspect]
     Indication: COR PULMONALE CHRONIC
     Dosage: 10MG (10MG, 1 IN 1D), ORAL
     Route: 048
     Dates: start: 20090602

REACTIONS (1)
  - Device related infection [None]
